FAERS Safety Report 20871611 (Version 1)
Quarter: 2022Q2

REPORT INFORMATION
  Report Type: Spontaneous
  Country: US (occurrence: None)
  Receive Date: 20220524
  Receipt Date: 20220524
  Transmission Date: 20220721
  Serious: No
  Sender: FDA-Public Use
  Company Number: None

PATIENT

DRUGS (1)
  1. ARGATROBAN [Suspect]
     Active Substance: ARGATROBAN
     Dates: start: 20220425, end: 20220426

REACTIONS (5)
  - Skin discolouration [None]
  - Feeling hot [None]
  - Pruritus [None]
  - Infusion site vesicles [None]
  - Arthropathy [None]

NARRATIVE: CASE EVENT DATE: 20220426
